FAERS Safety Report 26198297 (Version 1)
Quarter: 2025Q4

REPORT INFORMATION
  Report Type: Spontaneous
  Country: EU (occurrence: EU)
  Receive Date: 20251224
  Receipt Date: 20251224
  Transmission Date: 20260119
  Serious: Yes (Other)
  Sender: MYLAN
  Company Number: EU-JAZZ PHARMACEUTICALS-2025-FR-027803

PATIENT
  Age: 11 Year
  Sex: Female
  Weight: 25 kg

DRUGS (4)
  1. VALPROIC ACID [Suspect]
     Active Substance: VALPROIC ACID
     Indication: Product used for unknown indication
     Dosage: 20 MILLIGRAM/KILOGRAM, QD (20 MILLIGRAM/KILOGRAM, DAILY)
     Route: 061
     Dates: start: 202503
  2. CANNABIDIOL [Suspect]
     Active Substance: CANNABIDIOL
     Indication: Epilepsy
     Dosage: 400 MILLIGRAM
     Route: 061
  3. LAMOTRIGINE [Concomitant]
     Active Substance: LAMOTRIGINE
     Indication: Product used for unknown indication
     Dosage: 3 MILLIGRAM/KILOGRAM, QD (3 MILLIGRAM/KILOGRAM, DAILY)
     Route: 061
  4. LACOSAMIDE [Concomitant]
     Active Substance: LACOSAMIDE
     Indication: Product used for unknown indication
     Dosage: 6 MILLIGRAM/KILOGRAM, QD (6 MILLIGRAM/KILOGRAM, DAILY)
     Route: 061

REACTIONS (4)
  - Vomiting [Recovered/Resolved]
  - General physical health deterioration [Recovered/Resolved]
  - Asthenia [Recovered/Resolved]
  - Pallor [Recovered/Resolved]
